FAERS Safety Report 7897399-0 (Version None)
Quarter: 2011Q4

REPORT INFORMATION
  Report Type: 
  Country: None (occurrence: None)
  Receive Date: 20111107
  Receipt Date: 20111104
  Transmission Date: 20120403
  Serious: Yes (Hospitalization)
  Sender: FDA-Public Use
  Company Number: CH-BAYER-2011-106790

PATIENT
  Age: 69 Year
  Sex: Male

DRUGS (6)
  1. NOVALGIN [Suspect]
     Dosage: UNK
     Route: 048
     Dates: end: 20110911
  2. GABAPENTIN [Concomitant]
     Dosage: UNK
     Dates: end: 20110911
  3. METFORMIN HCL [Concomitant]
     Dosage: UNK
     Dates: end: 20110911
  4. ACETAMINOPHEN [Concomitant]
     Indication: PAIN
     Dosage: 1 G, TID
     Route: 048
  5. ASPIRIN [Suspect]
     Indication: PAIN
     Dosage: UNK
     Route: 048
     Dates: end: 20110911
  6. NSAID'S [Suspect]
     Indication: PAIN
     Dosage: UNK
     Route: 048
     Dates: end: 20110911

REACTIONS (2)
  - PYREXIA [None]
  - AGRANULOCYTOSIS [None]
